FAERS Safety Report 6287331-8 (Version None)
Quarter: 2009Q3

REPORT INFORMATION
  Report Type: 
  Country: None (occurrence: None)
  Receive Date: 20090728
  Receipt Date: 20090724
  Transmission Date: 20100115
  Serious: Yes (Other)
  Sender: FDA-Public Use
  Company Number: US-GENENTECH-286875

PATIENT
  Sex: Female
  Weight: 65.76 kg

DRUGS (1)
  1. TNKASE [Suspect]
     Indication: CEREBROVASCULAR ACCIDENT
     Dosage: 0.5 MG/KG, X1
     Route: 042
     Dates: start: 20090625

REACTIONS (1)
  - MEDICATION ERROR [None]
